FAERS Safety Report 21296746 (Version 1)
Quarter: 2022Q3

REPORT INFORMATION
  Report Type: Spontaneous
  Country: US (occurrence: None)
  Receive Date: 20220902
  Receipt Date: 20220902
  Transmission Date: 20221026
  Serious: Yes (Hospitalization)
  Sender: FDA-Public Use
  Company Number: None

PATIENT
  Age: 83 Year
  Sex: Male
  Weight: 66.22 kg

DRUGS (1)
  1. EMPAGLIFLOZIN [Suspect]
     Active Substance: EMPAGLIFLOZIN
     Dosage: FREQUENCY : DAILY;?
     Route: 048
     Dates: start: 20210428, end: 20220604

REACTIONS (3)
  - Toxic encephalopathy [None]
  - Urinary tract infection [None]
  - Genital candidiasis [None]

NARRATIVE: CASE EVENT DATE: 20220604
